FAERS Safety Report 9910401 (Version 2)
Quarter: 2014Q1

REPORT INFORMATION
  Report Type: Report from Study
  Country: JP (occurrence: JP)
  Receive Date: 20140219
  Receipt Date: 20140319
  Transmission Date: 20141002
  Serious: Yes (Hospitalization, Other)
  Sender: FDA-Public Use
  Company Number: JP-TAKEDA-2014TJP001645

PATIENT
  Age: 87 Year
  Sex: Female
  Weight: 45 kg

DRUGS (3)
  1. ALOGLIPTIN [Suspect]
     Indication: TYPE 2 DIABETES MELLITUS
     Dosage: 6.25 MG, QD
     Route: 048
     Dates: start: 20100901, end: 20101114
  2. ALOGLIPTIN [Suspect]
     Dosage: 12.5 MG, QD
     Route: 048
     Dates: start: 20101201, end: 20120729
  3. MADOPAR [Concomitant]
     Dosage: 200 MG, TID
     Route: 048
     Dates: start: 20110719

REACTIONS (1)
  - Femoral neck fracture [Unknown]
